FAERS Safety Report 6936501-1 (Version None)
Quarter: 2010Q3

REPORT INFORMATION
  Report Type: 
  Country: None (occurrence: None)
  Receive Date: 20100823
  Receipt Date: 20100805
  Transmission Date: 20110219
  Serious: No
  Sender: FDA-Public Use
  Company Number: US-PFIZER INC-2010099428

PATIENT
  Sex: Female
  Weight: 58.957 kg

DRUGS (4)
  1. TOVIAZ [Suspect]
     Indication: BLADDER DISORDER
     Dosage: 8 MG, DAILY
     Route: 048
     Dates: start: 20090101
  2. SUCRALOSE [Suspect]
     Indication: DYSGEUSIA
     Dosage: UNK
     Dates: start: 20100101
  3. NORVASC [Concomitant]
     Indication: HYPERTENSION
     Dosage: 10 MG, UNK
  4. SYNTHROID [Concomitant]
     Indication: HYPOTHYROIDISM
     Dosage: UNK

REACTIONS (4)
  - ERYTHEMA [None]
  - FLUSHING [None]
  - PRURITUS [None]
  - RASH [None]
